FAERS Safety Report 9862422 (Version 1)
Quarter: 2014Q1

REPORT INFORMATION
  Report Type: Report from Study
  Country: US (occurrence: US)
  Receive Date: 20140203
  Receipt Date: 20140203
  Transmission Date: 20141002
  Serious: Yes (Hospitalization)
  Sender: FDA-Public Use
  Company Number: US-ABBVIE-14P-163-1193946-00

PATIENT
  Sex: Male
  Weight: 77.18 kg

DRUGS (6)
  1. HUMIRA [Suspect]
     Indication: RHEUMATOID ARTHRITIS
     Dates: start: 2010, end: 201305
  2. HUMIRA [Suspect]
     Dates: start: 201306, end: 201307
  3. ALENDRONATE [Concomitant]
     Indication: RHEUMATOID ARTHRITIS
  4. HYDROXYCHLOROQUINE [Concomitant]
     Indication: RHEUMATOID ARTHRITIS
  5. ALLOPURINOL [Concomitant]
     Indication: GOUT
  6. BENICAR [Concomitant]
     Indication: BLOOD PRESSURE

REACTIONS (9)
  - Intervertebral disc protrusion [Recovered/Resolved]
  - Abasia [Recovered/Resolved]
  - Amnesia [Recovered/Resolved]
  - Staphylococcal infection [Recovered/Resolved]
  - Back injury [Recovered/Resolved]
  - Accident at work [Recovered/Resolved]
  - Nausea [Recovered/Resolved]
  - Weight decreased [Not Recovered/Not Resolved]
  - Arthralgia [Unknown]
